FAERS Safety Report 13215016 (Version 1)
Quarter: 2017Q1

REPORT INFORMATION
  Report Type: Spontaneous
  Country: US (occurrence: US)
  Receive Date: 20170209
  Receipt Date: 20170209
  Transmission Date: 20170428
  Serious: No
  Sender: FDA-Public Use
  Company Number: US-ALLERGAN-1681515US

PATIENT
  Age: 37 Year
  Sex: Female

DRUGS (1)
  1. BOTOX [Suspect]
     Active Substance: ONABOTULINUMTOXINA
     Indication: MIGRAINE
     Dosage: UNK UNK, SINGLE
     Route: 030
     Dates: start: 20160527, end: 20160527

REACTIONS (10)
  - Eyelid oedema [Recovered/Resolved]
  - Neck pain [Recovered/Resolved]
  - Blood pressure fluctuation [Unknown]
  - Asthma [Unknown]
  - Dyspnoea [Unknown]
  - Eye swelling [Recovered/Resolved]
  - Dizziness [Unknown]
  - Muscular weakness [Recovered/Resolved]
  - Atypical pneumonia [Unknown]
  - Heart rate irregular [Unknown]

NARRATIVE: CASE EVENT DATE: 20160527
